FAERS Safety Report 6201228-0 (Version None)
Quarter: 2009Q2

REPORT INFORMATION
  Report Type: 
  Country: None (occurrence: None)
  Receive Date: 20090526
  Receipt Date: 20090512
  Transmission Date: 20091009
  Serious: Yes (Other)
  Sender: FDA-Public Use
  Company Number: US-JNJFOC-20090503161

PATIENT
  Age: 47 Year
  Sex: Male

DRUGS (4)
  1. INFLIXIMAB [Suspect]
     Route: 042
  2. INFLIXIMAB [Suspect]
     Indication: SARCOIDOSIS
     Dosage: WEEK 0, 2, 6, 12
     Route: 042
  3. PREDNISONE [Concomitant]
  4. PREDNISONE [Concomitant]
     Indication: SARCOIDOSIS

REACTIONS (1)
  - BRONCHOPULMONARY ASPERGILLOSIS ALLERGIC [None]
